FAERS Safety Report 11108961 (Version 1)
Quarter: 2015Q2

REPORT INFORMATION
  Report Type: Spontaneous
  Country: CA (occurrence: None)
  Receive Date: 20150511
  Receipt Date: 20150511
  Transmission Date: 20150821
  Serious: Yes (Hospitalization)
  Sender: FDA-Public Use
  Company Number: 2015JUB00121

PATIENT
  Age: 28 Year
  Sex: Male

DRUGS (1)
  1. DONEPEZIL (DONEPEZIL) UNKNOWN [Suspect]
     Active Substance: DONEPEZIL

REACTIONS (6)
  - Diarrhoea [None]
  - Tachyphrenia [None]
  - Speech disorder [None]
  - Elevated mood [None]
  - Mania [None]
  - Psychomotor hyperactivity [None]
